FAERS Safety Report 12863720 (Version 3)
Quarter: 2018Q4

REPORT INFORMATION
  Report Type: Spontaneous
  Country: US (occurrence: US)
  Receive Date: 20161019
  Receipt Date: 20181218
  Transmission Date: 20190204
  Serious: No
  Sender: FDA-Public Use
  Company Number: US-PFIZER INC-2016486829

PATIENT
  Age: 61 Year
  Sex: Female
  Weight: 102 kg

DRUGS (2)
  1. LYRICA [Suspect]
     Active Substance: PREGABALIN
     Indication: FIBROMYALGIA
     Dosage: 150 MG, 2X/DAY
     Route: 048
  2. LYRICA [Suspect]
     Active Substance: PREGABALIN
     Indication: NEURALGIA

REACTIONS (4)
  - Dysphonia [Unknown]
  - Weight increased [Unknown]
  - Visual impairment [Recovered/Resolved]
  - Nasopharyngitis [Unknown]

NARRATIVE: CASE EVENT DATE: 201701
